FAERS Safety Report 14614389 (Version 1)
Quarter: 2018Q1

REPORT INFORMATION
  Report Type: Spontaneous
  Country: US (occurrence: US)
  Receive Date: 20180308
  Receipt Date: 20180308
  Transmission Date: 20180509
  Serious: Yes (Other)
  Sender: FDA-Public Use
  Company Number: None

PATIENT
  Age: 73 Year
  Sex: Male
  Weight: 85.5 kg

DRUGS (3)
  1. ALLOPURINOL. [Concomitant]
     Active Substance: ALLOPURINOL
  2. LIPITOR [Concomitant]
     Active Substance: ATORVASTATIN CALCIUM
  3. CAPECITABINE. [Suspect]
     Active Substance: CAPECITABINE
     Indication: COLON CANCER
     Route: 048
     Dates: start: 20171129

REACTIONS (1)
  - Rash [None]
